FAERS Safety Report 9629617 (Version 1)
Quarter: 2013Q4

REPORT INFORMATION
  Report Type: Spontaneous
  Country: US (occurrence: US)
  Receive Date: 20131017
  Receipt Date: 20131017
  Transmission Date: 20140711
  Serious: Yes (Other)
  Sender: FDA-Public Use
  Company Number: US-FRI-1000050101

PATIENT
  Age: 49 Year
  Sex: Female
  Weight: 68 kg

DRUGS (5)
  1. LINZESS [Suspect]
     Indication: IRRITABLE BOWEL SYNDROME
     Dosage: 290 MCG
     Route: 048
     Dates: start: 201309
  2. XANAX [Concomitant]
     Indication: ANXIETY
     Dosage: 3 MG
     Route: 048
  3. BUSPAR [Concomitant]
     Indication: ANXIETY
     Dosage: 15 MG
     Route: 048
  4. REQUIP [Concomitant]
     Indication: RESTLESS LEGS SYNDROME
     Dosage: 4 MG
     Route: 048
  5. BENADRYL [Concomitant]
     Indication: SEASONAL ALLERGY
     Dosage: AS NEEDED

REACTIONS (2)
  - Weight increased [Not Recovered/Not Resolved]
  - Diarrhoea [Not Recovered/Not Resolved]
